FAERS Safety Report 19505998 (Version 1)
Quarter: 2021Q3

REPORT INFORMATION
  Report Type: Spontaneous
  Country: US (occurrence: US)
  Receive Date: 20210708
  Receipt Date: 20210708
  Transmission Date: 20211014
  Serious: No
  Sender: FDA-Public Use
  Company Number: US-009507513-2106USA005964

PATIENT
  Age: 26 Year
  Sex: Female

DRUGS (10)
  1. AMIKACIN. [Concomitant]
     Active Substance: AMIKACIN
     Indication: MYCOBACTERIUM FORTUITUM INFECTION
  2. TIGECYCLINE. [Concomitant]
     Active Substance: TIGECYCLINE
     Indication: MYCOBACTERIUM FORTUITUM INFECTION
  3. AZITHROMYCIN ANHYDROUS. [Concomitant]
     Active Substance: AZITHROMYCIN ANHYDROUS
     Indication: ENDOCARDITIS
     Dosage: 250 MILLIGRAM, QD
     Route: 048
  4. LEVOFLOXACIN. [Concomitant]
     Active Substance: LEVOFLOXACIN
     Indication: MYCOBACTERIUM FORTUITUM INFECTION
  5. PRIMAXIN IV [Suspect]
     Active Substance: CILASTATIN SODIUM\IMIPENEM
     Indication: MYCOBACTERIUM FORTUITUM INFECTION
  6. PRIMAXIN IV [Suspect]
     Active Substance: CILASTATIN SODIUM\IMIPENEM
     Indication: ENDOCARDITIS
     Dosage: 1 GRAM, EVERY 8 HOURS (Q8H)
     Route: 042
  7. TIGECYCLINE. [Concomitant]
     Active Substance: TIGECYCLINE
     Indication: ENDOCARDITIS
     Dosage: 250 GRAM, Q24H
     Route: 042
  8. AZITHROMYCIN ANHYDROUS. [Concomitant]
     Active Substance: AZITHROMYCIN ANHYDROUS
     Indication: MYCOBACTERIUM FORTUITUM INFECTION
  9. AMIKACIN. [Concomitant]
     Active Substance: AMIKACIN
     Indication: ENDOCARDITIS
     Dosage: 17 MILLIGRAM/KILOGRAM, TIW
     Route: 042
  10. LEVOFLOXACIN. [Concomitant]
     Active Substance: LEVOFLOXACIN
     Indication: ENDOCARDITIS
     Dosage: 750 MILLIGRAM, QD
     Route: 048

REACTIONS (2)
  - Maternal exposure during pregnancy [Unknown]
  - Off label use [Unknown]
